FAERS Safety Report 6501696-0 (Version None)
Quarter: 2009Q4

REPORT INFORMATION
  Report Type: 
  Country: None (occurrence: None)
  Receive Date: 20091216
  Receipt Date: 20090521
  Transmission Date: 20100525
  Serious: No
  Sender: FDA-Public Use
  Company Number: US-AMGEN-KDL347371

PATIENT
  Sex: Female

DRUGS (9)
  1. ARANESP [Suspect]
     Indication: DRUG USE FOR UNKNOWN INDICATION
  2. PROTONIX [Concomitant]
  3. WARFARIN SODIUM [Concomitant]
  4. TAMOXIFEN CITRATE [Concomitant]
  5. ROCALTROL [Concomitant]
  6. DIGOXIN [Concomitant]
  7. TORSEMIDE [Concomitant]
  8. LIPITOR [Concomitant]
  9. METOPROLOL TARTRATE [Concomitant]

REACTIONS (1)
  - INJECTION SITE PAIN [None]
